FAERS Safety Report 6087699-1 (Version None)
Quarter: 2009Q1

REPORT INFORMATION
  Report Type: 
  Country: None (occurrence: None)
  Receive Date: 20090218
  Receipt Date: 20090218
  Transmission Date: 20090719
  Serious: Yes (Life-Threatening, Hospitalization)
  Sender: FDA-Public Use
  Company Number: None

PATIENT
  Age: 86 Year
  Sex: Male
  Weight: 91.4 kg

DRUGS (9)
  1. SIMVASTATIN [Suspect]
     Indication: HYPERLIPIDAEMIA
     Dosage: 80 MG DAILY PO, SEVERAL MONTHS
     Route: 048
  2. ITRACONAZOLE [Suspect]
     Indication: ASPERGILLOSIS
     Dosage: 200 MG TWICE DAILY PO
     Route: 048
     Dates: start: 20081116, end: 20090116
  3. ASPRIRIN [Concomitant]
  4. ALENDRONATE SODIUM [Concomitant]
  5. METOPROLOL [Concomitant]
  6. PRILOSEC [Concomitant]
  7. SALSALATE [Concomitant]
  8. ASMANEX TWISTHALER [Concomitant]
  9. NITROGLYCERIN [Concomitant]

REACTIONS (2)
  - DRUG INTERACTION [None]
  - RHABDOMYOLYSIS [None]
